FAERS Safety Report 23312500 (Version 1)
Quarter: 2023Q4

REPORT INFORMATION
  Report Type: Spontaneous
  Country: ES (occurrence: ES)
  Receive Date: 20231219
  Receipt Date: 20231219
  Transmission Date: 20240110
  Serious: Yes (Other)
  Sender: FDA-Public Use
  Company Number: ES-SANOFI-01875181

PATIENT
  Age: 11 Year
  Sex: Female

DRUGS (2)
  1. LANTUS [Suspect]
     Active Substance: INSULIN GLARGINE
     Indication: Type 1 diabetes mellitus
     Dosage: UNK
     Dates: start: 2017
  2. NOVORAPID [Suspect]
     Active Substance: INSULIN ASPART
     Indication: Type 1 diabetes mellitus
     Dosage: UNK
     Dates: start: 2017

REACTIONS (6)
  - Septal panniculitis [Unknown]
  - Diabetes mellitus inadequate control [Unknown]
  - Eosinophilic cellulitis [Unknown]
  - Eosinophilia [Unknown]
  - Injection site dermatitis [Unknown]
  - Injection site nodule [Unknown]
